FAERS Safety Report 18065601 (Version 1)
Quarter: 2020Q3

REPORT INFORMATION
  Report Type: Spontaneous
  Country: US (occurrence: US)
  Receive Date: 20200724
  Receipt Date: 20200724
  Transmission Date: 20201103
  Serious: Yes (Hospitalization)
  Sender: FDA-Public Use
  Company Number: None

PATIENT
  Age: 63 Year
  Sex: Male

DRUGS (1)
  1. GRANIX [Suspect]
     Active Substance: TBO-FILGRASTIM
     Indication: AGRANULOCYTOSIS
     Dosage: ?          OTHER STRENGTH:480MCG/0.8ML;OTHER DOSE:480 MCG/0.8 ML;?
     Route: 058
     Dates: start: 201810

REACTIONS (1)
  - Sepsis [None]

NARRATIVE: CASE EVENT DATE: 20200705
